FAERS Safety Report 4527291-0 (Version None)
Quarter: 2004Q4

REPORT INFORMATION
  Report Type: 
  Country: None (occurrence: None)
  Receive Date: 20041215
  Receipt Date: 20041203
  Transmission Date: 20050328
  Serious: Yes (Other)
  Sender: FDA-Public Use
  Company Number: NSADSS2002029109

PATIENT
  Sex: Female

DRUGS (1)
  1. REMICADE [Suspect]
     Route: 041

REACTIONS (4)
  - ARTHRALGIA [None]
  - MALAISE [None]
  - MYALGIA [None]
  - UNEVALUABLE EVENT [None]
